FAERS Safety Report 4323102-7 (Version None)
Quarter: 2004Q1

REPORT INFORMATION
  Report Type: 
  Country: None (occurrence: None)
  Receive Date: 20040323
  Receipt Date: 20040323
  Transmission Date: 20041129
  Serious: Yes (Hospitalization)
  Sender: FDA-Public Use
  Company Number: None

PATIENT
  Sex: Female
  Weight: 61.2356 kg

DRUGS (14)
  1. TAXOTERE [Suspect]
     Indication: BREAST CANCER
     Dosage: 124 MG IV Q 3 WKS
     Route: 042
     Dates: start: 20031215
  2. TAXOTERE [Suspect]
     Indication: BREAST CANCER
     Dosage: 124 MG IV Q 3 WKS
     Route: 042
     Dates: start: 20040106
  3. TAXOTERE [Suspect]
     Indication: BREAST CANCER
     Dosage: 124 MG IV Q 3 WKS
     Route: 042
     Dates: start: 20040203
  4. TAXOTERE [Suspect]
     Indication: BREAST CANCER
     Dosage: 124 MG IV Q 3 WKS
     Route: 042
     Dates: start: 20040303
  5. CARBOPLATIN [Suspect]
     Indication: BREAST CANCER
     Dosage: 706 MG IV Q 3 WKS
     Route: 042
     Dates: start: 20031215
  6. CARBOPLATIN [Suspect]
     Indication: BREAST CANCER
     Dosage: 706 MG IV Q 3 WKS
     Route: 042
     Dates: start: 20040106
  7. CARBOPLATIN [Suspect]
     Indication: BREAST CANCER
     Dosage: 706 MG IV Q 3 WKS
     Route: 042
     Dates: start: 20040203
  8. CARBOPLATIN [Suspect]
     Indication: BREAST CANCER
     Dosage: 706 MG IV Q 3 WKS
     Route: 042
     Dates: start: 20040303
  9. ALOXI [Concomitant]
  10. PHENERGAN [Concomitant]
  11. DECADRON [Concomitant]
  12. ZANTAC [Concomitant]
  13. HERCEPTIN [Suspect]
     Indication: BREAST CANCER
     Dosage: 245 MG IV LOADING DOSE
     Route: 042
     Dates: start: 20031215
  14. HERCEPTIN [Suspect]
     Indication: BREAST CANCER
     Dosage: 122 MG IV WEEKLY
     Route: 042
     Dates: start: 20031222, end: 20040310

REACTIONS (3)
  - BODY TEMPERATURE INCREASED [None]
  - LABORATORY TEST ABNORMAL [None]
  - WHITE BLOOD CELL COUNT DECREASED [None]
